FAERS Safety Report 8882803 (Version 1)
Quarter: 2012Q4

REPORT INFORMATION
  Report Type: 
  Country: BR (occurrence: BR)
  Receive Date: 20121102
  Receipt Date: 20121102
  Transmission Date: 20130627
  Serious: Yes (Hospitalization, Other)
  Sender: FDA-Public Use
  Company Number: PHHY2012BR099240

PATIENT
  Sex: Female
  Weight: 76 kg

DRUGS (4)
  1. DIOVAN AMLO FIX [Suspect]
     Indication: HYPERTENSION
     Dosage: 1 tablet a day
     Route: 048
  2. AAS [Concomitant]
     Indication: ANTICOAGULANT THERAPY
     Dosage: 2 tablets daily
  3. ATENOLOL CHLORTHALIDONE [Concomitant]
     Indication: HYPERTENSION
     Dosage: 1 tablet daily
  4. SIMVASTATIN [Concomitant]
     Indication: BLOOD CHOLESTEROL
     Dosage: 1 tablet per day

REACTIONS (4)
  - Cerebrovascular accident [Recovered/Resolved]
  - Transient ischaemic attack [Recovered/Resolved]
  - Carotid artery occlusion [Recovered/Resolved]
  - Tongue disorder [Unknown]
